FAERS Safety Report 8481627-7 (Version None)
Quarter: 2012Q3

REPORT INFORMATION
  Report Type: 
  Country: None (occurrence: None)
  Receive Date: 20120702
  Receipt Date: 20120620
  Transmission Date: 20120928
  Serious: No
  Sender: FDA-Public Use
  Company Number: US-BAYER-2012-061720

PATIENT
  Age: 82 Year
  Sex: Male

DRUGS (9)
  1. OMEGA [CARBINOXAMINE MALEATE] [Concomitant]
  2. LEVOTHYROXINE SODIUM [Concomitant]
     Dosage: 50 MG, QD
     Route: 048
  3. COQ10 [Concomitant]
  4. STAXYN [Suspect]
     Indication: ERECTILE DYSFUNCTION
     Dosage: UNK
     Route: 048
     Dates: start: 20120610, end: 20120617
  5. SIMVASTATIN [Concomitant]
  6. METOPROLOL TARTRATE [Concomitant]
     Dosage: `25 MG, QD
  7. ASPIRIN [Concomitant]
  8. MULTI-VITAMINS [Concomitant]
  9. LEVITRA [Suspect]
     Indication: ERECTILE DYSFUNCTION
     Dosage: UNK
     Route: 048
     Dates: start: 20090601, end: 20090601

REACTIONS (1)
  - ERECTILE DYSFUNCTION [None]
